FAERS Safety Report 6418669-9 (Version None)
Quarter: 2009Q4

REPORT INFORMATION
  Report Type: 
  Country: None (occurrence: None)
  Receive Date: 20091026
  Receipt Date: 20091013
  Transmission Date: 20100525
  Serious: Yes (Other)
  Sender: FDA-Public Use
  Company Number: ADR39512009

PATIENT
  Age: 64 Year
  Sex: Female

DRUGS (6)
  1. SIMVASTATIN [Suspect]
     Indication: HYPERCHOLESTEROLAEMIA
     Dosage: 20 MG ORAL
     Route: 048
     Dates: start: 20080103, end: 20080515
  2. SIMVASTATIN [Suspect]
     Indication: PROPHYLAXIS
     Dosage: 20 MG ORAL
     Route: 048
     Dates: start: 20080103, end: 20080515
  3. ASPIRIN [Concomitant]
  4. ATENOLOL [Concomitant]
  5. ENDROFLUMETHIAZIDE [Concomitant]
  6. LEVOTHYROXINE SODIUM [Concomitant]

REACTIONS (2)
  - NEUROPATHY PERIPHERAL [None]
  - PAIN [None]
